FAERS Safety Report 22595186 (Version 1)
Quarter: 2023Q2

REPORT INFORMATION
  Report Type: Spontaneous
  Country: US (occurrence: None)
  Receive Date: 20230612
  Receipt Date: 20230612
  Transmission Date: 20230721
  Serious: Yes (Other)
  Sender: FDA-Public Use
  Company Number: None

PATIENT
  Age: 30 Year
  Sex: Male
  Weight: 77.1 kg

DRUGS (2)
  1. PERSERIS [Suspect]
     Active Substance: RISPERIDONE
     Indication: Mental disorder
     Dosage: OTHER QUANTITY : 1 INJECTION(S);?OTHER FREQUENCY : 1 INJECTION;?OTHER ROUTE : 1 30-DAY EXTENDED INJE
     Route: 050
     Dates: start: 20221209, end: 20221209
  2. apripiprazole [Concomitant]

REACTIONS (13)
  - Dizziness [None]
  - Pain [None]
  - Musculoskeletal stiffness [None]
  - Mental fatigue [None]
  - Vomiting [None]
  - Disorientation [None]
  - Somnolence [None]
  - Cough [None]
  - Chest discomfort [None]
  - Rhinorrhoea [None]
  - Somnolence [None]
  - Abnormal behaviour [None]
  - Heart rate increased [None]

NARRATIVE: CASE EVENT DATE: 20221209
